FAERS Safety Report 8853843 (Version 4)
Quarter: 2013Q2

REPORT INFORMATION
  Report Type: Spontaneous
  Country: FI (occurrence: FI)
  Receive Date: 20121022
  Receipt Date: 20130403
  Transmission Date: 20140414
  Serious: Yes (Disabling)
  Sender: FDA-Public Use
  Company Number: PHHY2012FI093555

PATIENT
  Age: 65 Year
  Sex: Male

DRUGS (8)
  1. ZOMETA [Suspect]
     Indication: METASTASES TO BONE
     Dosage: 3 MG, EVERY 3-4 WEEKS
     Route: 042
     Dates: start: 20110916, end: 20120329
  2. ZOMETA [Suspect]
     Indication: RENAL CANCER METASTATIC
  3. XGEVA [Suspect]
     Indication: METASTASES TO BONE
     Dosage: 120 MG, DAILY
     Route: 058
     Dates: start: 20120420, end: 20120615
  4. XGEVA [Suspect]
     Indication: RENAL CANCER METASTATIC
  5. OXYCONTIN [Concomitant]
     Indication: ANALGESIC THERAPY
     Dosage: 40 MG, DAILY
     Route: 048
     Dates: start: 20120518
  6. VOTRIENT [Concomitant]
     Indication: RENAL CANCER METASTATIC
     Dosage: 800 MG, DAILY
     Route: 048
     Dates: start: 20111118
  7. PRIMPERAN [Concomitant]
     Indication: NAUSEA
     Dosage: 30 MG,DAILY
     Route: 048
     Dates: start: 20120217
  8. AVASTIN [Concomitant]

REACTIONS (5)
  - Osteonecrosis of jaw [Not Recovered/Not Resolved]
  - Exposed bone in jaw [Not Recovered/Not Resolved]
  - Erythema [Unknown]
  - Swelling [Unknown]
  - Pain in jaw [Unknown]
